FAERS Safety Report 7061269-0 (Version None)
Quarter: 2010Q4

REPORT INFORMATION
  Report Type: 
  Country: None (occurrence: None)
  Receive Date: 20101026
  Receipt Date: 20101018
  Transmission Date: 20110411
  Serious: No
  Sender: FDA-Public Use
  Company Number: US-PFIZER INC-2010132751

PATIENT
  Sex: Female
  Weight: 68.027 kg

DRUGS (8)
  1. ZOLOFT [Suspect]
     Indication: MIGRAINE
     Dosage: 100 MG, DAILY
     Route: 048
  2. LIPITOR [Concomitant]
     Dosage: 40 MG, UNK
  3. LISINOPRIL [Concomitant]
     Dosage: 20 MG, UNK
  4. PLAVIX [Concomitant]
     Dosage: 75 MG, UNK
  5. PROPRANOLOL [Concomitant]
     Dosage: 60 MG, UNK
  6. VESICARE [Concomitant]
     Dosage: UNK
  7. ACETYLSALICYLIC ACID [Concomitant]
     Dosage: 80 MG, UNK
  8. ESTRADIOL [Concomitant]
     Dosage: 1 MG, UNK

REACTIONS (2)
  - HEADACHE [None]
  - NECK PAIN [None]
